FAERS Safety Report 12517372 (Version 1)
Quarter: 2016Q2

REPORT INFORMATION
  Report Type: Spontaneous
  Country: US (occurrence: US)
  Receive Date: 20160630
  Receipt Date: 20160630
  Transmission Date: 20160815
  Serious: No
  Sender: FDA-Public Use
  Company Number: US-BRISTOL-MYERS SQUIBB COMPANY-BMS-2016-053133

PATIENT
  Sex: Female

DRUGS (2)
  1. ABILIFY [Suspect]
     Active Substance: ARIPIPRAZOLE
     Indication: MAJOR DEPRESSION
     Dosage: 15 MG, QD
     Route: 048
     Dates: start: 2009
  2. ABILIFY [Suspect]
     Active Substance: ARIPIPRAZOLE
     Dosage: 20 MG, UNK
     Route: 048
     Dates: start: 201605

REACTIONS (8)
  - Off label use [Unknown]
  - Product use issue [Unknown]
  - Disturbance in attention [Unknown]
  - Insomnia [Not Recovered/Not Resolved]
  - Menstruation irregular [Unknown]
  - Job dissatisfaction [Unknown]
  - Wrong technique in product usage process [Unknown]
  - Asocial behaviour [Unknown]
